FAERS Safety Report 9998736 (Version 1)
Quarter: 2014Q1

REPORT INFORMATION
  Report Type: Spontaneous
  Country: US (occurrence: US)
  Receive Date: 20140312
  Receipt Date: 20140312
  Transmission Date: 20141002
  Serious: No
  Sender: FDA-Public Use
  Company Number: US-BIOGENIDEC-2014BI019623

PATIENT
  Age: 33 Year
  Sex: Male

DRUGS (10)
  1. TECFIDERA [Suspect]
     Indication: MULTIPLE SCLEROSIS
     Route: 048
     Dates: start: 20140214
  2. BACLOFEN [Concomitant]
  3. CLONAZEPAM [Concomitant]
  4. KEPPRA [Concomitant]
  5. LANSOPRAZOLE [Concomitant]
  6. NAPROXEN [Concomitant]
  7. NUVIGIL [Concomitant]
  8. OXCARBAZEPINE [Concomitant]
  9. TOPIRAMATE [Concomitant]
  10. VENLAFAXINE HCI [Concomitant]

REACTIONS (1)
  - Feeling jittery [Unknown]
